FAERS Safety Report 4375846-9 (Version None)
Quarter: 2004Q2

REPORT INFORMATION
  Report Type: 
  Country: None (occurrence: None)
  Receive Date: 20040609
  Receipt Date: 20040609
  Transmission Date: 20050107
  Serious: Yes (Life-Threatening, Hospitalization)
  Sender: FDA-Public Use
  Company Number: None

PATIENT
  Age: 53 Year
  Sex: Male

DRUGS (12)
  1. PHENYTOIN [Suspect]
     Indication: CONVULSION
     Dosage: 200 MG PO BID
     Route: 048
     Dates: start: 20031201, end: 20030218
  2. PHENYTOIN [Suspect]
     Indication: CONVULSION
     Dosage: 200 MG PO BID
     Route: 048
     Dates: start: 20040301, end: 20040303
  3. AMLODIPINE [Concomitant]
  4. BENZAPRIL [Concomitant]
  5. LEVETIRACETAM [Concomitant]
  6. SERTRALINE HCL [Concomitant]
  7. HYDROCHLOROTHIAZIDE [Concomitant]
  8. ATENOLOL [Concomitant]
  9. VANCOMYCIN [Concomitant]
  10. CEFEPIME [Concomitant]
  11. METRONIDAZOLE [Concomitant]
  12. LACTULOSE [Concomitant]

REACTIONS (12)
  - BODY TEMPERATURE INCREASED [None]
  - COMA [None]
  - HEPATITIS ACUTE [None]
  - HEPATITIS VIRAL [None]
  - HYPERSENSITIVITY [None]
  - HYPOTENSION [None]
  - NIKOLSKY'S SIGN [None]
  - PURULENCE [None]
  - RENAL FAILURE ACUTE [None]
  - SKIN NECROSIS [None]
  - TOXIC EPIDERMAL NECROLYSIS [None]
  - WHITE BLOOD CELL COUNT INCREASED [None]
